FAERS Safety Report 10413214 (Version 11)
Quarter: 2016Q3

REPORT INFORMATION
  Report Type: Report from Study
  Country: US (occurrence: US)
  Receive Date: 20140827
  Receipt Date: 20160915
  Transmission Date: 20161109
  Serious: Yes (Hospitalization, Other)
  Sender: FDA-Public Use
  Company Number: US-SA-2014SA113395

PATIENT
  Age: 53 Year
  Sex: Female

DRUGS (13)
  1. TRAMADOL HYDROCHLORIDE. [Concomitant]
     Active Substance: TRAMADOL HYDROCHLORIDE
  2. VALIUM [Concomitant]
     Active Substance: DIAZEPAM
  3. AUBAGIO [Suspect]
     Active Substance: TERIFLUNOMIDE
     Indication: MULTIPLE SCLEROSIS
     Route: 048
     Dates: start: 20150301
  4. DULCOLAX NOS [Concomitant]
     Active Substance: BISACODYL OR DOCUSATE SODIUM
  5. ASPIRIN. [Concomitant]
     Active Substance: ASPIRIN
     Indication: BACK PAIN
  6. AUBAGIO [Suspect]
     Active Substance: TERIFLUNOMIDE
     Indication: MULTIPLE SCLEROSIS
     Route: 048
     Dates: start: 20140507
  7. AUBAGIO [Suspect]
     Active Substance: TERIFLUNOMIDE
     Indication: MULTIPLE SCLEROSIS
     Route: 048
  8. DICLOFENAC POTASSIUM. [Concomitant]
     Active Substance: DICLOFENAC POTASSIUM
  9. FERROUS SULFATE. [Concomitant]
     Active Substance: FERROUS SULFATE
  10. LYRICA [Concomitant]
     Active Substance: PREGABALIN
  11. BACLOFEN. [Concomitant]
     Active Substance: BACLOFEN
  12. LEXAPRO [Concomitant]
     Active Substance: ESCITALOPRAM OXALATE
  13. LEXAPRO [Concomitant]
     Active Substance: ESCITALOPRAM OXALATE

REACTIONS (12)
  - Condition aggravated [Not Recovered/Not Resolved]
  - Gastrointestinal disorder [Unknown]
  - Gastrointestinal disorder [Not Recovered/Not Resolved]
  - Dyspepsia [Not Recovered/Not Resolved]
  - Memory impairment [Not Recovered/Not Resolved]
  - Dysgraphia [Not Recovered/Not Resolved]
  - Memory impairment [Unknown]
  - Urinary incontinence [Recovered/Resolved]
  - Fall [Unknown]
  - Contusion [Not Recovered/Not Resolved]
  - Multiple sclerosis relapse [Recovering/Resolving]
  - Multiple sclerosis [Unknown]

NARRATIVE: CASE EVENT DATE: 20150516
